FAERS Safety Report 15306200 (Version 4)
Quarter: 2018Q3

REPORT INFORMATION
  Report Type: Spontaneous
  Country: US (occurrence: US)
  Receive Date: 20180822
  Receipt Date: 20180925
  Transmission Date: 20181010
  Serious: Yes (Hospitalization, Other)
  Sender: FDA-Public Use
  Company Number: US-PFIZER INC-2018336686

PATIENT
  Age: 60 Year
  Sex: Female
  Weight: 75 kg

DRUGS (3)
  1. LATANOPROST. [Suspect]
     Active Substance: LATANOPROST
     Indication: INTRAOCULAR PRESSURE INCREASED
     Dosage: 2 GTT, 1X/DAY; (ONE DROP IN EACH EYE AT NIGHT)
     Route: 047
  2. LYRICA [Concomitant]
     Active Substance: PREGABALIN
     Indication: FIBROMYALGIA
     Dosage: 200 MG, 3X/DAY
  3. LYRICA [Concomitant]
     Active Substance: PREGABALIN
     Indication: PAIN

REACTIONS (3)
  - Retinitis pigmentosa [Unknown]
  - Arthropod bite [Unknown]
  - Sepsis [Unknown]

NARRATIVE: CASE EVENT DATE: 20171025
